FAERS Safety Report 19574496 (Version 1)
Quarter: 2021Q3

REPORT INFORMATION
  Report Type: Spontaneous
  Country: US (occurrence: US)
  Receive Date: 20210719
  Receipt Date: 20210719
  Transmission Date: 20211014
  Serious: Yes (Other)
  Sender: FDA-Public Use
  Company Number: US-HIKMA PHARMACEUTICALS USA INC.-US-H14001-21-03232

PATIENT
  Age: 9 Year
  Sex: Female

DRUGS (3)
  1. CARBOPLATIN. [Suspect]
     Active Substance: CARBOPLATIN
     Indication: GERM CELL CANCER
     Dosage: UNKNOWN
     Route: 065
  2. DEXMEDETOMIDINE. [Concomitant]
     Active Substance: DEXMEDETOMIDINE
     Indication: SEDATION
     Dosage: UNKNOWN
     Route: 041
  3. ETOPOSIDE. [Suspect]
     Active Substance: ETOPOSIDE
     Indication: GERM CELL CANCER
     Dosage: UNKNOWN
     Route: 065

REACTIONS (9)
  - Clostridium difficile infection [Unknown]
  - Frustration tolerance decreased [Unknown]
  - Impulse-control disorder [Unknown]
  - Febrile neutropenia [Unknown]
  - Bacterial tracheitis [Unknown]
  - Epiglottitis [Unknown]
  - Agitation [Recovered/Resolved]
  - Aggression [Unknown]
  - Cerebrovascular accident [Unknown]
